FAERS Safety Report 6100248-4 (Version None)
Quarter: 2009Q1

REPORT INFORMATION
  Report Type: 
  Country: None (occurrence: None)
  Receive Date: 20090226
  Receipt Date: 20090216
  Transmission Date: 20090719
  Serious: No
  Sender: FDA-Public Use
  Company Number: 2009-191540-NL

PATIENT
  Sex: Male

DRUGS (2)
  1. MIRTAZAPINE [Suspect]
     Indication: DEPRESSION
     Dosage: 15 MG 5 WEEKS 4 DAYS
     Dates: start: 20080901, end: 20081010
  2. PREDNISOLONE [Concomitant]

REACTIONS (1)
  - PANCYTOPENIA [None]
